FAERS Safety Report 9531871 (Version 1)
Quarter: 2013Q3

REPORT INFORMATION
  Report Type: Spontaneous
  Country: US (occurrence: None)
  Receive Date: 20130917
  Receipt Date: 20130917
  Transmission Date: 20140515
  Serious: Yes (Disabling)
  Sender: FDA-Public Use
  Company Number: None

PATIENT
  Age: 46 Year
  Sex: Female
  Weight: 59.42 kg

DRUGS (5)
  1. TIZANIDINE [Suspect]
     Dosage: 1 PILL
     Route: 048
     Dates: start: 20130913, end: 20130915
  2. SKELAXIN [Suspect]
     Route: 048
     Dates: start: 20130910, end: 20130912
  3. PROCHLORPERAZINE [Concomitant]
  4. CENESTIN [Concomitant]
  5. XANAAX [Concomitant]

REACTIONS (4)
  - Balance disorder [None]
  - Vertigo [None]
  - Nausea [None]
  - Muscular weakness [None]
